FAERS Safety Report 6646441-3 (Version None)
Quarter: 2010Q1

REPORT INFORMATION
  Report Type: 
  Country: None (occurrence: None)
  Receive Date: 20100322
  Receipt Date: 20100322
  Transmission Date: 20100710
  Serious: Yes (Other)
  Sender: FDA-Public Use
  Company Number: None

PATIENT
  Age: 92 Year
  Sex: Female
  Weight: 63.5036 kg

DRUGS (3)
  1. GELNIQUE [Suspect]
     Indication: PAIN
     Dosage: 7MG FOR 3 WKS APPLIED ONCE A DAY 15 MG FOR 2 WKS
  2. GELNIQUE [Suspect]
     Indication: RASH
     Dosage: 7MG FOR 3 WKS APPLIED ONCE A DAY 15 MG FOR 2 WKS
  3. GELNIQUE [Suspect]
     Indication: URINARY INCONTINENCE
     Dosage: 7MG FOR 3 WKS APPLIED ONCE A DAY 15 MG FOR 2 WKS

REACTIONS (2)
  - APPLICATION SITE RASH [None]
  - PAIN IN EXTREMITY [None]
